FAERS Safety Report 6839784-1 (Version None)
Quarter: 2010Q3

REPORT INFORMATION
  Report Type: 
  Country: None (occurrence: None)
  Receive Date: 20100708
  Receipt Date: 20100621
  Transmission Date: 20110219
  Serious: Yes (Death)
  Sender: FDA-Public Use
  Company Number: 1-23144651

PATIENT
  Age: 42 Year
  Sex: Male

DRUGS (3)
  1. CLINDAMYCIN [Suspect]
     Indication: EPIGLOTTITIS
     Dosage: 1.2 GM X 1, INTRAVENOUS DRIP
     Route: 041
  2. DEXAMETHASONE [Concomitant]
  3. SODIUM CHLORIDE SOLUTION [Concomitant]

REACTIONS (9)
  - ASPHYXIA [None]
  - CARDIAC ARREST [None]
  - CONDITION AGGRAVATED [None]
  - EPIGLOTTITIS [None]
  - LARYNGEAL DISORDER [None]
  - LARYNGEAL OEDEMA [None]
  - NO THERAPEUTIC RESPONSE [None]
  - RESPIRATORY ARREST [None]
  - SWELLING [None]
